FAERS Safety Report 22150091 (Version 1)
Quarter: 2023Q1

REPORT INFORMATION
  Report Type: Report from Study
  Country: JP (occurrence: None)
  Receive Date: 20230329
  Receipt Date: 20230329
  Transmission Date: 20230418
  Serious: Yes (Other)
  Sender: FDA-Public Use
  Company Number: JP-ROCHE-3318029

PATIENT
  Age: 68 Year
  Sex: Male

DRUGS (42)
  1. RITUXIMAB [Suspect]
     Active Substance: RITUXIMAB
     Indication: Diffuse large B-cell lymphoma
     Route: 065
     Dates: start: 20160706, end: 20161020
  2. RITUXIMAB [Suspect]
     Active Substance: RITUXIMAB
     Route: 065
     Dates: start: 20190402, end: 20190604
  3. LENALIDOMIDE [Suspect]
     Active Substance: LENALIDOMIDE
     Indication: Diffuse large B-cell lymphoma
     Route: 048
     Dates: start: 20160706, end: 20161102
  4. DOXORUBICIN [Suspect]
     Active Substance: DOXORUBICIN
     Indication: Diffuse large B-cell lymphoma
     Route: 065
     Dates: start: 20160707, end: 20161020
  5. CYCLOPHOSPHAMIDE [Suspect]
     Active Substance: CYCLOPHOSPHAMIDE
     Indication: Diffuse large B-cell lymphoma
     Route: 065
     Dates: start: 20160707, end: 20161020
  6. VINCRISTINE [Suspect]
     Active Substance: VINCRISTINE
     Indication: Diffuse large B-cell lymphoma
     Route: 065
     Dates: start: 20160707, end: 20161020
  7. PREDNISONE [Suspect]
     Active Substance: PREDNISONE
     Indication: Diffuse large B-cell lymphoma
     Route: 065
     Dates: start: 20160707, end: 20161024
  8. IMIPENEM [Concomitant]
     Active Substance: IMIPENEM
  9. CILASTATIN SODIUM [Concomitant]
     Active Substance: CILASTATIN SODIUM
  10. BETAMETHASONE [Concomitant]
     Active Substance: BETAMETHASONE
  11. DEXCHLORPHENIRAMINE MALEATE [Concomitant]
     Active Substance: DEXCHLORPHENIRAMINE MALEATE
  12. NAPROXEN [Concomitant]
     Active Substance: NAPROXEN
  13. MINOCYCLINE HYDROCHLORIDE [Concomitant]
     Active Substance: MINOCYCLINE HYDROCHLORIDE
  14. CELECOXIB [Concomitant]
     Active Substance: CELECOXIB
  15. ZOLPIDEM TARTRATE [Concomitant]
     Active Substance: ZOLPIDEM TARTRATE
  16. TELMISARTAN [Concomitant]
     Active Substance: TELMISARTAN
  17. REBAMIPIDE [Concomitant]
     Active Substance: REBAMIPIDE
  18. PANTETHINE [Concomitant]
     Active Substance: PANTETHINE
  19. MAGNESIUM OXIDE [Concomitant]
     Active Substance: MAGNESIUM OXIDE
  20. LOXOPROFEN SODIUM DIHYDRATE [Concomitant]
     Active Substance: LOXOPROFEN SODIUM DIHYDRATE
  21. SODIUM GUALENATE MONOHYDRATE [Concomitant]
     Active Substance: SODIUM GUALENATE MONOHYDRATE
  22. PENTAZOCINE [Concomitant]
     Active Substance: PENTAZOCINE
  23. CARBAZOCHROME [Concomitant]
     Active Substance: CARBAZOCHROME
  24. CEFTAZIDIME [Concomitant]
     Active Substance: CEFTAZIDIME
  25. DEXTROSE [Concomitant]
     Active Substance: DEXTROSE
  26. THIAMINE HYDROCHLORIDE [Concomitant]
     Active Substance: THIAMINE HYDROCHLORIDE
  27. FUROSEMIDE [Concomitant]
     Active Substance: FUROSEMIDE
  28. PREDNISOLONE [Concomitant]
     Active Substance: PREDNISOLONE
  29. BETAMETHASONE VALERATE [Concomitant]
     Active Substance: BETAMETHASONE VALERATE
  30. ACETAZOLAMIDE [Concomitant]
     Active Substance: ACETAZOLAMIDE
  31. LANSOPRAZOLE [Concomitant]
     Active Substance: LANSOPRAZOLE
  32. SODIUM PICOSULFATE [Concomitant]
     Active Substance: SODIUM PICOSULFATE
  33. ASCORBIC ACID [Concomitant]
     Active Substance: ASCORBIC ACID
  34. SODIUM ASCORBATE [Concomitant]
     Active Substance: SODIUM ASCORBATE
  35. POTASSIUM CHLORIDE [Concomitant]
     Active Substance: POTASSIUM CHLORIDE
  36. SODIUM SULFATE ANHYDROUS [Concomitant]
     Active Substance: SODIUM SULFATE ANHYDROUS
  37. POLYETHYLENE GLYCOL 4000 [Concomitant]
     Active Substance: POLYETHYLENE GLYCOL 4000
  38. SODIUM CHLORIDE [Concomitant]
     Active Substance: SODIUM CHLORIDE
  39. ETOPOSIDE [Concomitant]
     Active Substance: ETOPOSIDE
  40. CYTARABINE [Concomitant]
     Active Substance: CYTARABINE
  41. DEXAMETHASONE [Concomitant]
     Active Substance: DEXAMETHASONE
  42. FLUDEOXYGLUCOSE F-18 [Concomitant]
     Active Substance: FLUDEOXYGLUCOSE F-18

REACTIONS (1)
  - Hodgkin^s disease [Not Recovered/Not Resolved]

NARRATIVE: CASE EVENT DATE: 20190902
